FAERS Safety Report 4314991-0 (Version None)
Quarter: 2004Q1

REPORT INFORMATION
  Report Type: 
  Country: None (occurrence: None)
  Receive Date: 20040309
  Receipt Date: 20040224
  Transmission Date: 20041129
  Serious: Yes (Hospitalization)
  Sender: FDA-Public Use
  Company Number: US-JNJFOC-20040206001

PATIENT
  Age: 56 Year
  Sex: Male
  Weight: 102.0593 kg

DRUGS (15)
  1. INFLIXIMAB (INFLIXIMAB, RECOMBINANT) LYOPHILIZED POWDER [Suspect]
     Indication: RHEUMATOID ARTHRITIS
     Dosage: INTRAVENOUS
     Route: 042
     Dates: start: 20030123
  2. COUMADIN [Concomitant]
  3. BETAPACE [Concomitant]
  4. ACIPHEX [Concomitant]
  5. ZOLOFT [Concomitant]
  6. LISINOPRIL [Concomitant]
  7. PREVACID [Concomitant]
  8. LIPITOR [Concomitant]
  9. METHOTREXATE [Concomitant]
  10. FOLIC ACID [Concomitant]
  11. GLYNASE [Concomitant]
  12. METOCLOPRAMIDE [Concomitant]
  13. METFORMIN HCL [Concomitant]
  14. PREDNISONE (PERDNISONE) [Concomitant]
  15. INSULIN [Concomitant]

REACTIONS (6)
  - ABDOMINAL PAIN [None]
  - COLONIC POLYP [None]
  - DYSPEPSIA [None]
  - GASTRITIS [None]
  - HEPATIC CYST [None]
  - OESOPHAGITIS [None]
